FAERS Safety Report 26108773 (Version 1)
Quarter: 2025Q4

REPORT INFORMATION
  Report Type: Spontaneous
  Country: US (occurrence: US)
  Receive Date: 20251201
  Receipt Date: 20251201
  Transmission Date: 20260117
  Serious: Yes (Death, Hospitalization)
  Sender: MYLAN
  Company Number: US-MYLANLABS-2025M1100004

PATIENT
  Age: 55 Year
  Sex: Female

DRUGS (29)
  1. METHOTREXATE [Suspect]
     Active Substance: METHOTREXATE
     Indication: Myositis
     Dosage: UNK
  2. METHOTREXATE [Suspect]
     Active Substance: METHOTREXATE
     Indication: Inflammation
  3. DEXAMETHASONE [Suspect]
     Active Substance: DEXAMETHASONE
     Indication: Haemophagocytic lymphohistiocytosis
     Dosage: UNK
  4. DOXORUBICIN [Suspect]
     Active Substance: DOXORUBICIN
     Indication: Haemophagocytic lymphohistiocytosis
     Dosage: UNK UNK, CYCLE (PART OF R-EPOCH CHEMOTHERAPY, FIRST CYCLE)
  5. DOXORUBICIN [Suspect]
     Active Substance: DOXORUBICIN
     Indication: Lymphoproliferative disorder
     Dosage: UNK UNK, CYCLE (PART OF R-EPOCH CHEMOTHERAPY, SECOND CYCLE, RECEIVED 50% DOSE REDUCTION)
  6. DOXORUBICIN [Suspect]
     Active Substance: DOXORUBICIN
     Indication: Diffuse large B-cell lymphoma
     Dosage: UNK UNK, CYCLE (PART OF R-EPOCH CHEMOTHERAPY, THIRD CYCLE)
  7. DOXORUBICIN [Suspect]
     Active Substance: DOXORUBICIN
     Indication: Liver disorder
  8. ETOPOSIDE [Suspect]
     Active Substance: ETOPOSIDE
     Indication: Haemophagocytic lymphohistiocytosis
     Dosage: UNK, CYCLE (PART OF R-EPOCH CHEMOTHERAPY, FIRST CYCLE)
  9. ETOPOSIDE [Suspect]
     Active Substance: ETOPOSIDE
     Indication: Lymphoproliferative disorder
     Dosage: UNK, CYCLE (PART OF R-EPOCH CHEMOTHERAPY, SECOND CYCLE, RECEIVED 50% DOSE REDUCTION)
  10. ETOPOSIDE [Suspect]
     Active Substance: ETOPOSIDE
     Indication: Diffuse large B-cell lymphoma
     Dosage: UNK UNK, CYCLE (PART OF R-EPOCH CHEMOTHERAPY, THIRD CYCLE)
  11. ETOPOSIDE [Suspect]
     Active Substance: ETOPOSIDE
     Indication: Liver disorder
  12. PREDNISONE [Suspect]
     Active Substance: PREDNISONE
     Indication: Haemophagocytic lymphohistiocytosis
     Dosage: UNK, CYCLE (PART OF R-EPOCH CHEMOTHERAPY, FIRST CYCLE)
  13. PREDNISONE [Suspect]
     Active Substance: PREDNISONE
     Indication: Lymphoproliferative disorder
     Dosage: UNK, CYCLE (PART OF R-EPOCH CHEMOTHERAPY, SECOND CYCLE, RECEIVED 50% DOSE REDUCTION)
  14. PREDNISONE [Suspect]
     Active Substance: PREDNISONE
     Indication: Diffuse large B-cell lymphoma
     Dosage: UNK, CYCLE (PART OF R-EPOCH CHEMOTHERAPY, THIRD CYCLE)
  15. PREDNISONE [Suspect]
     Active Substance: PREDNISONE
     Indication: Liver disorder
  16. IMMUNE GLOBULIN NOS [Suspect]
     Active Substance: IMMUNE GLOBULIN NOS
     Indication: Lymphoma
     Dosage: UNK
  17. IMMUNE GLOBULIN NOS [Suspect]
     Active Substance: IMMUNE GLOBULIN NOS
     Indication: Immunomodulatory therapy
  18. RITUXIMAB [Suspect]
     Active Substance: RITUXIMAB
     Indication: Haemophagocytic lymphohistiocytosis
     Dosage: UNK, CYCLE (PART OF R-EPOCH CHEMOTHERAPY, FIRST CYCLE)
  19. RITUXIMAB [Suspect]
     Active Substance: RITUXIMAB
     Indication: Lymphoproliferative disorder
     Dosage: UNK, CYCLE (PART OF R-EPOCH CHEMOTHERAPY, SECOND CYCLE, RECEIVED 50% DOSE REDUCTION)
  20. RITUXIMAB [Suspect]
     Active Substance: RITUXIMAB
     Indication: Diffuse large B-cell lymphoma
     Dosage: UNK, CYCLE (PART OF R-EPOCH CHEMOTHERAPY, THIRD CYCLE)
  21. RITUXIMAB [Suspect]
     Active Substance: RITUXIMAB
     Indication: Liver disorder
  22. VINCRISTINE [Suspect]
     Active Substance: VINCRISTINE
     Indication: Haemophagocytic lymphohistiocytosis
     Dosage: UNK, CYCLE (PART OF R-EPOCH CHEMOTHERAPY, FIRST CYCLE)
  23. VINCRISTINE [Suspect]
     Active Substance: VINCRISTINE
     Indication: Lymphoproliferative disorder
     Dosage: UNK, CYCLE (PART OF R-EPOCH CHEMOTHERAPY, SECOND CYCLE, RECEIVED 50% DOSE REDUCTION)
  24. VINCRISTINE [Suspect]
     Active Substance: VINCRISTINE
     Indication: Diffuse large B-cell lymphoma
     Dosage: UNK, CYCLE (PART OF R-EPOCH CHEMOTHERAPY, THIRD CYCLE)
  25. VINCRISTINE [Suspect]
     Active Substance: VINCRISTINE
     Indication: Liver disorder
  26. CYCLOPHOSPHAMIDE [Suspect]
     Active Substance: CYCLOPHOSPHAMIDE
     Indication: Haemophagocytic lymphohistiocytosis
     Dosage: UNK, CYCLE (PART OF R-EPOCH CHEMOTHERAPY, FIRST CYCLE)
  27. CYCLOPHOSPHAMIDE [Suspect]
     Active Substance: CYCLOPHOSPHAMIDE
     Indication: Lymphoproliferative disorder
     Dosage: UNK, CYCLE (PART OF R-EPOCH CHEMOTHERAPY, SECOND CYCLE, RECEIVED 50% DOSE REDUCTION)
  28. CYCLOPHOSPHAMIDE [Suspect]
     Active Substance: CYCLOPHOSPHAMIDE
     Indication: Diffuse large B-cell lymphoma
     Dosage: UNK, CYCLE (PART OF R-EPOCH CHEMOTHERAPY, THIRD CYCLE)
  29. CYCLOPHOSPHAMIDE [Suspect]
     Active Substance: CYCLOPHOSPHAMIDE
     Indication: Liver disorder

REACTIONS (18)
  - Lymphoproliferative disorder [Fatal]
  - Diffuse large B-cell lymphoma [Fatal]
  - Liver disorder [Fatal]
  - Haemophagocytic lymphohistiocytosis [Fatal]
  - Disseminated intravascular coagulation [Fatal]
  - Multiple organ dysfunction syndrome [Fatal]
  - Sepsis [Fatal]
  - Drug ineffective [Fatal]
  - Respiratory failure [Unknown]
  - Haemodynamic instability [Unknown]
  - Pneumonia aspiration [Unknown]
  - Hypoxia [Unknown]
  - Ileus [Unknown]
  - Deep vein thrombosis [Unknown]
  - Lung consolidation [Unknown]
  - Clostridium difficile infection [Unknown]
  - Stress cardiomyopathy [Unknown]
  - Psychotic disorder [Unknown]
